FAERS Safety Report 6203563-9 (Version None)
Quarter: 2009Q2

REPORT INFORMATION
  Report Type: 
  Country: None (occurrence: None)
  Receive Date: 20090521
  Receipt Date: 20090512
  Transmission Date: 20091009
  Serious: Yes (Hospitalization)
  Sender: FDA-Public Use
  Company Number: 000828

PATIENT
  Sex: Female
  Weight: 45 kg

DRUGS (6)
  1. ISOKET (ISOKET) [Suspect]
     Indication: CORONARY ARTERY DISEASE
     Dosage: (10 MG QD INTRAVENOUS (NOT OTHERWISE SPECIFIED))
     Route: 042
     Dates: start: 20090430, end: 20090504
  2. GLUCOSE (1.5% GLUCOSE) [Suspect]
     Dosage: (250 ML QD INTRAVENOUS (NOT OTHERWISE SPECIFIED))
     Route: 042
     Dates: start: 20090430, end: 20090506
  3. POTASSIUM CHLORIDE [Concomitant]
  4. MAGNESIUM SULFATE [Concomitant]
  5. POTASSIUM MAGNESIUM ASPARTATE [Concomitant]
  6. PERINDOPRIL [Concomitant]

REACTIONS (6)
  - CHILLS [None]
  - DYSPNOEA [None]
  - FEAR [None]
  - HYPERTENSION [None]
  - LOSS OF CONSCIOUSNESS [None]
  - PYREXIA [None]
